FAERS Safety Report 17613439 (Version 1)
Quarter: 2020Q2

REPORT INFORMATION
  Report Type: Spontaneous
  Country: CN (occurrence: CN)
  Receive Date: 20200402
  Receipt Date: 20200402
  Transmission Date: 20200713
  Serious: Yes (Disabling)
  Sender: FDA-Public Use
  Company Number: CN-BAXTER-2020BAX006750

PATIENT
  Age: 33 Year
  Sex: Female
  Weight: 63 kg

DRUGS (8)
  1. ENDOXAN [Suspect]
     Active Substance: CYCLOPHOSPHAMIDE
     Indication: BREAST CANCER
     Dosage: DAY 1, CYCLOPHOSPHAMIDE + 0.9 % SODIUM CHLORIDE 100 ML
     Route: 041
     Dates: start: 20200226, end: 20200226
  2. 5% GLUCOSE  INJECTION [Suspect]
     Active Substance: DEXTROSE
     Dosage: DOSE RE-INTRODUCED, PIRARUBICIN HYDROCHLORIDE + 5 % GLUCOSE
     Route: 041
     Dates: start: 202003
  3. 0.9% SODIUM CHLORIDE INJECTION [Suspect]
     Active Substance: SODIUM CHLORIDE
     Dosage: DOSE RE-INTRODUCED, CYCLOPHOSPHAMIDE + 0.9 % SODIUM CHLORIDE
     Route: 041
     Dates: start: 202003
  4. 5% GLUCOSE  INJECTION [Suspect]
     Active Substance: DEXTROSE
     Indication: MEDICATION DILUTION
     Dosage: DAY 1, Q14D, PIRARUBICIN HYDROCHLORIDE 100 MG + 5 % GLUCOSE
     Route: 041
     Dates: start: 20200226, end: 20200226
  5. PIRARUBICIN HYDROCHLORIDE [Suspect]
     Active Substance: PIRARUBICIN HYDROCHLORIDE
     Indication: BREAST CANCER
     Dosage: DAY 1, Q14D, PIRARUBICIN HYDROCHLORIDE + 5 % GLUCOSE 100 ML
     Route: 041
     Dates: start: 20200226, end: 20200226
  6. ENDOXAN [Suspect]
     Active Substance: CYCLOPHOSPHAMIDE
     Dosage: DOSE REINTRODUCED, CYCLOPHOSPHAMIDE + 0.9 % SODIUM CHLORIDE
     Route: 041
     Dates: start: 202003
  7. PIRARUBICIN HYDROCHLORIDE [Suspect]
     Active Substance: PIRARUBICIN HYDROCHLORIDE
     Dosage: DOSE RE-INTRODUCED, PIRARUBICIN HYDROCHLORIDE + 0.9 % SODIUM CHLORIDE
     Route: 041
     Dates: start: 202003
  8. 0.9% SODIUM CHLORIDE INJECTION [Suspect]
     Active Substance: SODIUM CHLORIDE
     Indication: MEDICATION DILUTION
     Dosage: DAY 1, CYCLOPHOSPHAMIDE 1000 MG + 0.9 % SODIUM CHLORIDE
     Route: 041
     Dates: start: 20200226, end: 20200226

REACTIONS (1)
  - Hepatic function abnormal [Recovered/Resolved]

NARRATIVE: CASE EVENT DATE: 20200311
